FAERS Safety Report 7163902-1 (Version None)
Quarter: 2010Q4

REPORT INFORMATION
  Report Type: 
  Country: None (occurrence: None)
  Receive Date: 20101202
  Receipt Date: 20101122
  Transmission Date: 20110411
  Serious: Yes (Other)
  Sender: FDA-Public Use
  Company Number: 022784

PATIENT
  Age: 50 Year
  Sex: Female
  Weight: 79 kg

DRUGS (7)
  1. LEVETIRACETAM [Suspect]
     Indication: CONVULSION
     Dosage: (500 MG BID) (1000 TID) (750 MG TID)
     Dates: start: 20081101, end: 20090101
  2. LEVETIRACETAM [Suspect]
     Indication: CONVULSION
     Dosage: (500 MG BID) (1000 TID) (750 MG TID)
     Dates: start: 20090101, end: 20090201
  3. LEVETIRACETAM [Suspect]
     Indication: CONVULSION
     Dosage: (500 MG BID) (1000 TID) (750 MG TID)
     Dates: start: 20090201, end: 20090411
  4. PHENYTOIN [Suspect]
     Indication: CONVULSION
     Dosage: 100 MG TID
     Dates: start: 20081101, end: 20090101
  5. ESCITALOPRAM [Concomitant]
  6. ADVAIR [Concomitant]
  7. MULTI-VITAMINS [Concomitant]

REACTIONS (2)
  - BONE MARROW FAILURE [None]
  - THROMBOCYTOPENIA [None]
